FAERS Safety Report 7688756-6 (Version None)
Quarter: 2011Q3

REPORT INFORMATION
  Report Type: 
  Country: None (occurrence: None)
  Receive Date: 20110817
  Receipt Date: 20110805
  Transmission Date: 20111222
  Serious: Yes (Life-Threatening, Hospitalization)
  Sender: FDA-Public Use
  Company Number: US-ALEXION-A201101023

PATIENT
  Sex: Female

DRUGS (5)
  1. PROZAC [Concomitant]
     Dosage: UNK
  2. FERROUS SULFATE TAB [Concomitant]
     Dosage: UNK
  3. FOLIC ACID [Concomitant]
     Dosage: UNK
  4. SOLIRIS [Suspect]
     Indication: PAROXYSMAL NOCTURNAL HAEMOGLOBINURIA
     Dosage: 600 MG, QW
     Route: 042
     Dates: start: 20100511, end: 20100101
  5. SOLIRIS [Suspect]
     Dosage: 900 MG, Q2W
     Route: 042
     Dates: start: 20100608

REACTIONS (4)
  - VOMITING [None]
  - HEADACHE [None]
  - HAEMOLYSIS [None]
  - BLOOD POTASSIUM ABNORMAL [None]
